FAERS Safety Report 20477462 (Version 1)
Quarter: 2022Q1

REPORT INFORMATION
  Report Type: Spontaneous
  Country: PL (occurrence: PL)
  Receive Date: 20220216
  Receipt Date: 20220216
  Transmission Date: 20220423
  Serious: Yes (Hospitalization, Other)
  Sender: FDA-Public Use
  Company Number: PL-Accord-252187

PATIENT
  Age: 29 Year
  Sex: Female

DRUGS (5)
  1. ONDANSETRON [Interacting]
     Active Substance: ONDANSETRON
     Indication: Product used for unknown indication
     Dosage: 16 MILLIGRAM, ONCE A DAY
     Route: 065
  2. BUPROPION [Interacting]
     Active Substance: BUPROPION
     Indication: Product used for unknown indication
     Dosage: 150 MILLIGRAM, ONCE A DAY (FIRST 6 DAYS AT A DOSE OF 150 MG / DAY, THEN 300 MG / DAY)
     Route: 065
  3. SEMAGLUTIDE [Interacting]
     Active Substance: SEMAGLUTIDE
     Indication: Product used for unknown indication
     Dosage: 0.5 MILLIGRAM, EVERY WEEK (0.5 MG SUBCUTANEOUSLY 1 * WEEK)
     Route: 058
  4. BUPROPION HYDROCHLORIDE\NALTREXONE HYDROCHLORIDE [Interacting]
     Active Substance: BUPROPION HYDROCHLORIDE\NALTREXONE HYDROCHLORIDE
     Indication: Product used for unknown indication
     Dosage: UNK (NALTREXONE (8 MG) AND BUPROPION (90 MG): TWO TABLETS AFTER DINNER)
     Route: 065
  5. VORTIOXETINE [Interacting]
     Active Substance: VORTIOXETINE
     Indication: Product used for unknown indication
     Dosage: 10 MILLIGRAM (AFTER THE LAST MEAL)
     Route: 065

REACTIONS (5)
  - Renal failure [Recovered/Resolved]
  - Drug interaction [Unknown]
  - Serotonin syndrome [Recovered/Resolved]
  - Myopathy [Recovered/Resolved]
  - Myoglobinuria [Recovered/Resolved]
